FAERS Safety Report 23170002 (Version 2)
Quarter: 2023Q4

REPORT INFORMATION
  Report Type: Spontaneous
  Country: ES (occurrence: ES)
  Receive Date: 20231110
  Receipt Date: 20231117
  Transmission Date: 20240110
  Serious: Yes (Life-Threatening, Hospitalization, Other)
  Sender: FDA-Public Use
  Company Number: ES-PFIZER INC-PV202300177010

PATIENT
  Age: 24 Year
  Sex: Male
  Weight: 89 kg

DRUGS (2)
  1. AVIBACTAM SODIUM [Suspect]
     Active Substance: AVIBACTAM SODIUM
     Indication: Pneumonia
     Dosage: TIME INTERVAL: 0.33333333 DAYS: 2 G, 3X/DAY
     Route: 042
     Dates: start: 20230926, end: 20231008
  2. AZTREONAM [Concomitant]
     Active Substance: AZTREONAM
     Indication: Pneumonia
     Dosage: UNK
     Route: 065
     Dates: start: 20230919, end: 20231004

REACTIONS (6)
  - Tubulointerstitial nephritis [Recovered/Resolved]
  - Blood osmolarity increased [Unknown]
  - Blood chloride increased [Unknown]
  - Hypernatraemia [Recovered/Resolved]
  - Hypokalaemia [Unknown]
  - Polyuria [Recovered/Resolved]

NARRATIVE: CASE EVENT DATE: 20230101
